FAERS Safety Report 26188551 (Version 1)
Quarter: 2025Q4

REPORT INFORMATION
  Report Type: Report from Study
  Country: None (occurrence: EU)
  Receive Date: 20251222
  Receipt Date: 20251222
  Transmission Date: 20260117
  Serious: Yes (Hospitalization)
  Sender: SPRINGWORKS THERAPEUTIC
  Company Number: EU-SPRINGWORKS THERAPEUTICS-SW-003160

PATIENT
  Age: 43 Year
  Weight: 54 kg

DRUGS (11)
  1. NIROGACESTAT [Suspect]
     Active Substance: NIROGACESTAT
     Indication: Desmoid tumour
     Dosage: UNK
  2. NIROGACESTAT [Suspect]
     Active Substance: NIROGACESTAT
     Dosage: TWO PILLS IN THE MORNING AND TWO AT NIGHT.
  3. NIROGACESTAT [Suspect]
     Active Substance: NIROGACESTAT
     Dosage: ONE PILL IN THE MORNING AND ONE AT NIGHT
  4. NIROGACESTAT [Suspect]
     Active Substance: NIROGACESTAT
     Dosage: TWO PILLS IN THE MORNING AND TWO AT NIGHT
  5. NIROGACESTAT [Suspect]
     Active Substance: NIROGACESTAT
     Dosage: TWO PILLS IN THE MORNING AND 1 IN THE AFTERNOON
  6. NIROGACESTAT [Suspect]
     Active Substance: NIROGACESTAT
     Dosage: ONE PILL IN THE MORNING AND ONE IN THE AFTERNOON
  7. NIROGACESTAT [Suspect]
     Active Substance: NIROGACESTAT
     Dosage: 100 MILLIGRAM, BID
  8. LOPERAMIDE [Suspect]
     Active Substance: LOPERAMIDE
     Indication: Diarrhoea
     Dosage: UNK
  9. LOPERAMIDE [Suspect]
     Active Substance: LOPERAMIDE
     Indication: Adenomatous polyposis coli
  10. SULINDAC [Concomitant]
     Active Substance: SULINDAC
     Indication: Adenomatous polyposis coli
  11. DIENOGEST\ETHINYL ESTRADIOL [Concomitant]
     Active Substance: DIENOGEST\ETHINYL ESTRADIOL
     Indication: Menstrual disorder

REACTIONS (20)
  - Frequent bowel movements [Not Recovered/Not Resolved]
  - Faecal volume increased [Not Recovered/Not Resolved]
  - Haematochezia [Not Recovered/Not Resolved]
  - Mucous stools [Not Recovered/Not Resolved]
  - Haemorrhage [Not Recovered/Not Resolved]
  - Intestinal perforation [Recovered/Resolved]
  - Infected neoplasm [Recovered/Resolved]
  - Peritonitis [Recovered/Resolved]
  - Weight decreased [Unknown]
  - Rectal haemorrhage [Unknown]
  - Ileus paralytic [Recovered/Resolved]
  - Abdominal discomfort [Unknown]
  - Pain [Unknown]
  - Decreased appetite [Unknown]
  - Diarrhoea [Not Recovered/Not Resolved]
  - Rash [Unknown]
  - Amenorrhoea [Unknown]
  - Fatigue [Unknown]
  - Nausea [Unknown]
  - Underdose [Unknown]
